FAERS Safety Report 9260718 (Version 2)
Quarter: 2014Q1

REPORT INFORMATION
  Report Type: Spontaneous
  Country: US (occurrence: US)
  Receive Date: 20130429
  Receipt Date: 20140122
  Transmission Date: 20141002
  Serious: Yes (Other)
  Sender: FDA-Public Use
  Company Number: US-SANOFI-AVENTIS-2013SA042743

PATIENT
  Age: 39 Year
  Sex: Female

DRUGS (14)
  1. AUBAGIO [Suspect]
     Indication: MULTIPLE SCLEROSIS
     Route: 048
     Dates: start: 201301, end: 20130419
  2. LYRICA [Concomitant]
     Route: 065
  3. NORTRIPTYLINE HYDROCHLORIDE [Concomitant]
     Route: 065
  4. SIMVASTATIN [Concomitant]
     Route: 065
  5. TIZANIDINE HYDROCHLORIDE [Concomitant]
     Route: 065
  6. LACTOBACILLUS ACIDOPHILUS [Concomitant]
     Route: 065
  7. HERBAL POLLEN NOS [Concomitant]
     Route: 065
  8. ALOE VERA [Concomitant]
     Route: 065
  9. VITAMIN D [Concomitant]
     Route: 065
  10. MULTIVITAMINS [Concomitant]
     Route: 065
  11. GINGKO BILOBA [Concomitant]
     Route: 065
  12. NIACIN [Concomitant]
     Route: 065
  13. BIOTIN [Concomitant]
     Route: 065
  14. TOPAMAX [Concomitant]
     Route: 065

REACTIONS (3)
  - Liver injury [Recovered/Resolved]
  - Abdominal pain upper [Recovered/Resolved]
  - Skin discolouration [Recovered/Resolved]
